FAERS Safety Report 11790305 (Version 1)
Quarter: 2015Q4

REPORT INFORMATION
  Report Type: Spontaneous
  Country: US (occurrence: None)
  Receive Date: 20151130
  Receipt Date: 20151130
  Transmission Date: 20160305
  Serious: Yes (Life-Threatening, Hospitalization)
  Sender: FDA-Public Use
  Company Number: None

PATIENT
  Age: 87 Year
  Sex: Female
  Weight: 57 kg

DRUGS (9)
  1. CONJUGATED ESTROGENS 0.3MG [Concomitant]
  2. FAMOTIDINE 20MG [Concomitant]
     Active Substance: FAMOTIDINE
  3. ELIQUIS [Suspect]
     Active Substance: APIXABAN
     Indication: ATRIAL FIBRILLATION
     Route: 048
     Dates: start: 20150522, end: 20151125
  4. OXYCODONE HCL 5MG [Concomitant]
     Active Substance: OXYCODONE
  5. TYLENOL 650MG [Concomitant]
  6. ATORVASTATIN 40MG WATSON [Concomitant]
     Active Substance: ATORVASTATIN
  7. ASPIRIN 81MG [Concomitant]
     Active Substance: ASPIRIN
  8. LEVOTHYROXINE 75MCG [Concomitant]
  9. METOPROLOL TARTRATE 50MG [Concomitant]
     Active Substance: METOPROLOL TARTRATE

REACTIONS (1)
  - Head injury [None]

NARRATIVE: CASE EVENT DATE: 20151125
